FAERS Safety Report 4802110-3 (Version None)
Quarter: 2005Q4

REPORT INFORMATION
  Report Type: 
  Country: None (occurrence: None)
  Receive Date: 20051011
  Receipt Date: 20050928
  Transmission Date: 20060501
  Serious: Yes (Other)
  Sender: FDA-Public Use
  Company Number: PHBS2005US14321

PATIENT
  Age: 21 Year
  Sex: Male

DRUGS (2)
  1. ATENOLOL [Suspect]
  2. PHENOXYBENZAMINE (PHENOXYBENZAMINE) [Suspect]

REACTIONS (9)
  - ASTHENIA [None]
  - CHEST PAIN [None]
  - HYPERTENSION [None]
  - HYPOTENSION [None]
  - LETHARGY [None]
  - ORTHOSTATIC HYPOTENSION [None]
  - PALPITATIONS [None]
  - PULMONARY OEDEMA [None]
  - SYNCOPE [None]
